FAERS Safety Report 6864121-6 (Version None)
Quarter: 2010Q3

REPORT INFORMATION
  Report Type: 
  Country: None (occurrence: None)
  Receive Date: 20100720
  Receipt Date: 20100707
  Transmission Date: 20110219
  Serious: Yes (Other)
  Sender: FDA-Public Use
  Company Number: DSA_43186_2010

PATIENT
  Sex: Female

DRUGS (13)
  1. XENAZINE [Suspect]
     Indication: CHOREA
     Dosage: DF ORAL, 12.5 MG TID ORAL
     Route: 048
     Dates: start: 20100101
  2. XENAZINE [Suspect]
     Indication: DYSKINESIA
     Dosage: DF ORAL, 12.5 MG TID ORAL
     Route: 048
     Dates: start: 20100101
  3. XENAZINE [Suspect]
     Indication: MEIGE'S SYNDROME
     Dosage: DF ORAL, 12.5 MG TID ORAL
     Route: 048
     Dates: start: 20100101
  4. XENAZINE [Suspect]
     Indication: CHOREA
     Dosage: DF ORAL, 12.5 MG TID ORAL
     Route: 048
     Dates: start: 20100406
  5. XENAZINE [Suspect]
     Indication: DYSKINESIA
     Dosage: DF ORAL, 12.5 MG TID ORAL
     Route: 048
     Dates: start: 20100406
  6. XENAZINE [Suspect]
     Indication: MEIGE'S SYNDROME
     Dosage: DF ORAL, 12.5 MG TID ORAL
     Route: 048
     Dates: start: 20100406
  7. METHOCARBAMOL [Concomitant]
  8. CLONAZEPAM [Concomitant]
  9. OMEPRAZOLE [Concomitant]
  10. LISINOPRIL [Concomitant]
  11. SIMVASTATIN [Concomitant]
  12. LEVOTHYROXINE SODIUM [Concomitant]
  13. MULTIVITAMIN [Concomitant]

REACTIONS (10)
  - AREFLEXIA [None]
  - CHOKING [None]
  - COUGH [None]
  - FACE INJURY [None]
  - GRIMACING [None]
  - HYPERKINESIA [None]
  - MUSCLE TIGHTNESS [None]
  - PAIN [None]
  - RESTLESSNESS [None]
  - RHINORRHOEA [None]
